FAERS Safety Report 12479530 (Version 1)
Quarter: 2016Q2

REPORT INFORMATION
  Report Type: Spontaneous
  Country: US (occurrence: US)
  Receive Date: 20160620
  Receipt Date: 20160620
  Transmission Date: 20160815
  Serious: Yes (Other)
  Sender: FDA-Public Use
  Company Number: US-ROCHE-1777651

PATIENT
  Age: 24 Year

DRUGS (1)
  1. PULMOZYME [Suspect]
     Active Substance: DORNASE ALFA
     Indication: CEREBRAL PALSY
     Route: 065

REACTIONS (2)
  - Malaise [Unknown]
  - Respiratory distress [Unknown]
